FAERS Safety Report 18723069 (Version 2)
Quarter: 2021Q1

REPORT INFORMATION
  Report Type: Spontaneous
  Country: ES (occurrence: ES)
  Receive Date: 20210111
  Receipt Date: 20210125
  Transmission Date: 20210419
  Serious: Yes (Other)
  Sender: FDA-Public Use
  Company Number: ES-SUN PHARMACEUTICAL INDUSTRIES LTD-2019RR-221993

PATIENT
  Age: 63 Year
  Sex: Female

DRUGS (1)
  1. LEVETIRACETAM CINFA EFG [Suspect]
     Active Substance: LEVETIRACETAM
     Indication: PARTIAL SEIZURES
     Dosage: INCREASED UNTIL IT REACHED 1,000 MG C/12H; INTRAVENOUS AND SUBSEQUENTLY BY THE ORAL ROUTE OF ADMINIS
     Route: 065

REACTIONS (3)
  - Aggression [Recovered/Resolved]
  - Delirium [Recovered/Resolved]
  - Substance-induced psychotic disorder [Recovered/Resolved]
